FAERS Safety Report 5775327-1 (Version None)
Quarter: 2008Q2

REPORT INFORMATION
  Report Type: 
  Country: None (occurrence: None)
  Receive Date: 20080617
  Receipt Date: 20080605
  Transmission Date: 20081010
  Serious: Yes (Hospitalization)
  Sender: FDA-Public Use
  Company Number: FR-NOVOPROD-276310

PATIENT
  Age: 26 Year
  Sex: Male
  Weight: 60 kg

DRUGS (3)
  1. NORDITROPIN [Suspect]
     Indication: GROWTH HORMONE DEFICIENCY
     Dosage: .2 MG, QD
     Dates: start: 20050101, end: 20060201
  2. LEVOTHYROXINE SODIUM [Concomitant]
     Dosage: 175 UG, UNK
     Dates: start: 20070201
  3. HYDROCORTISONE [Concomitant]
     Dosage: 20 MG, QD

REACTIONS (2)
  - ASTHENIA [None]
  - PYREXIA [None]
